FAERS Safety Report 12896806 (Version 2)
Quarter: 2017Q1

REPORT INFORMATION
  Report Type: Spontaneous
  Country: PT (occurrence: PT)
  Receive Date: 20161031
  Receipt Date: 20170109
  Transmission Date: 20170428
  Serious: Yes (Disabling, Other)
  Sender: FDA-Public Use
  Company Number: PT-PFIZER INC-2016496179

PATIENT
  Age: 59 Year
  Sex: Male
  Weight: 55 kg

DRUGS (2)
  1. SUTENT [Suspect]
     Active Substance: SUNITINIB MALATE
     Indication: RENAL CANCER METASTATIC
     Dosage: 50 MG, (X/DAY 2 WEEKS ON, 1 WEEK OFF)
     Route: 048
     Dates: start: 20161006
  2. IRON [Concomitant]
     Active Substance: IRON
     Dosage: 1 DF, 1X/DAY
     Route: 065

REACTIONS (5)
  - Pyrexia [Recovered/Resolved]
  - Diarrhoea [Recovered/Resolved]
  - Vomiting [Recovered/Resolved]
  - Hyperhidrosis [Recovered/Resolved]
  - Nasopharyngitis [Recovered/Resolved]

NARRATIVE: CASE EVENT DATE: 20161008
